FAERS Safety Report 7909915 (Version 3)
Quarter: 2015Q4

REPORT INFORMATION
  Report Type: Spontaneous
  Country: US (occurrence: US)
  Receive Date: 20110421
  Receipt Date: 20151022
  Transmission Date: 20160305
  Serious: Yes (Other)
  Sender: FDA-Public Use
  Company Number: US-PFIZER INC-2011084448

PATIENT
  Age: 64 Year
  Sex: Male

DRUGS (14)
  1. ALLOPURINOL. [Concomitant]
     Active Substance: ALLOPURINOL
  2. CARVEDILOL. [Concomitant]
     Active Substance: CARVEDILOL
  3. LINEZOLID. [Suspect]
     Active Substance: LINEZOLID
     Dosage: 600 MG, 2X/DAY
     Route: 048
  4. AMLODIPINE BESILATE [Concomitant]
     Active Substance: AMLODIPINE BESYLATE
  5. CITALOPRAM [Concomitant]
     Active Substance: CITALOPRAM HYDROBROMIDE
  6. GLYBURIDE. [Concomitant]
     Active Substance: GLYBURIDE
     Dosage: 2.5  MG, BID
  7. NPH INSULIN [Concomitant]
     Active Substance: INSULIN BEEF
     Dosage: 35 U EVERY MORNING
  8. NPH INSULIN [Concomitant]
     Active Substance: INSULIN BEEF
     Dosage: 25 U NIGHTLY
  9. WARFARIN [Concomitant]
     Active Substance: WARFARIN
  10. COLCHICINE. [Concomitant]
     Active Substance: COLCHICINE
  11. GLYBURIDE. [Concomitant]
     Active Substance: GLYBURIDE
     Dosage: 5 MG, BID
  12. PRAVASTATIN [Concomitant]
     Active Substance: PRAVASTATIN\PRAVASTATIN SODIUM
  13. LISINOPRIL. [Concomitant]
     Active Substance: LISINOPRIL
     Dosage: UNK
  14. METFORMIN [Concomitant]
     Active Substance: METFORMIN HYDROCHLORIDE
     Dosage: 1000 MG, BID

REACTIONS (1)
  - Hypoglycaemia [Unknown]
